FAERS Safety Report 22683540 (Version 4)
Quarter: 2023Q4

REPORT INFORMATION
  Report Type: Report from Study
  Country: EG (occurrence: EG)
  Receive Date: 20230708
  Receipt Date: 20231019
  Transmission Date: 20240110
  Serious: Yes (Life-Threatening, Other)
  Sender: FDA-Public Use
  Company Number: EG-002147023-NVSC2023EG152619

PATIENT
  Age: 36 Year
  Sex: Male

DRUGS (8)
  1. COSENTYX [Suspect]
     Active Substance: SECUKINUMAB
     Indication: Psoriasis
     Dosage: 1 DOSAGE FORM, QMO (OFF-LABEL MAINTENANCE DOSE WITHOUT LOADING DOSE)
     Route: 058
     Dates: start: 202108
  2. COSENTYX [Suspect]
     Active Substance: SECUKINUMAB
     Indication: Psoriatic arthropathy
     Dosage: 1 DOSAGE FORM, QMO
     Route: 058
     Dates: start: 20210916
  3. COSENTYX [Suspect]
     Active Substance: SECUKINUMAB
     Dosage: 1 DOSAGE FORM, Q2MO  (END DATE 5 DAYS AGO AS PER PATIENT^S WORDS)
     Route: 058
  4. METHOTREXATE [Concomitant]
     Active Substance: METHOTREXATE
     Indication: Psoriasis
     Dosage: 0.5 CM, QW
     Route: 058
     Dates: start: 202108
  5. METHOTREXATE [Concomitant]
     Active Substance: METHOTREXATE
     Indication: Bone disorder
     Dosage: 0.5 CM, QW
     Route: 058
     Dates: start: 20210916
  6. FOLIC ACID [Concomitant]
     Active Substance: FOLIC ACID
     Indication: Renal disorder prophylaxis
     Dosage: 2 DOSAGE FORM, QW (AFTER 3 DAYS OF THE MTX DOSE)
     Route: 065
     Dates: start: 202108
  7. ANTODINE [Concomitant]
     Indication: Gastritis
     Dosage: 1 DOSAGE FORM, QD (AT THE MORNING)
     Route: 065
     Dates: start: 202108
  8. ANTODINE [Concomitant]
     Indication: Vomiting

REACTIONS (13)
  - Feeling abnormal [Unknown]
  - Fatigue [Not Recovered/Not Resolved]
  - Vomiting [Not Recovered/Not Resolved]
  - Gastrooesophageal reflux disease [Not Recovered/Not Resolved]
  - Concomitant disease aggravated [Not Recovered/Not Resolved]
  - Psoriatic arthropathy [Not Recovered/Not Resolved]
  - Pain [Unknown]
  - Psoriasis [Not Recovered/Not Resolved]
  - Bone disorder [Unknown]
  - Nervousness [Unknown]
  - Incorrect dose administered [Unknown]
  - Product use issue [Unknown]
  - Product dose omission issue [Not Recovered/Not Resolved]

NARRATIVE: CASE EVENT DATE: 20210801
